FAERS Safety Report 9920168 (Version 2)
Quarter: 2014Q1

REPORT INFORMATION
  Report Type: Report from Study
  Country: GR (occurrence: GR)
  Receive Date: 20140224
  Receipt Date: 20140306
  Transmission Date: 20141002
  Serious: Yes (Life-Threatening, Hospitalization)
  Sender: FDA-Public Use
  Company Number: GR-ABBVIE-14P-066-1205247-00

PATIENT
  Age: 30 Year
  Sex: Female

DRUGS (5)
  1. HUMIRA [Suspect]
     Indication: CROHN^S DISEASE
     Dosage: BASELINE
     Route: 058
     Dates: start: 20071109, end: 20071109
  2. HUMIRA [Suspect]
     Dosage: WEEK 2
     Route: 058
  3. HUMIRA [Suspect]
     Route: 058
     Dates: end: 20120201
  4. HUMIRA [Suspect]
     Route: 058
     Dates: start: 20120315, end: 20130329
  5. INFLIXIMAB [Concomitant]
     Indication: CROHN^S DISEASE

REACTIONS (2)
  - Colitis [Recovered/Resolved]
  - Colitis [Recovered/Resolved]
